FAERS Safety Report 12403499 (Version 2)
Quarter: 2016Q2

REPORT INFORMATION
  Report Type: Spontaneous
  Country: None (occurrence: US)
  Receive Date: 20160525
  Receipt Date: 20160526
  Transmission Date: 20160815
  Serious: No
  Sender: FDA-Public Use
  Company Number: US-SPEAR PHARMACEUTICALS-1052775

PATIENT
  Sex: Female

DRUGS (1)
  1. FLUOROURACIL. [Suspect]
     Active Substance: FLUOROURACIL
     Route: 061
     Dates: start: 20150121, end: 20150224

REACTIONS (2)
  - Adverse drug reaction [None]
  - Swollen tongue [None]

NARRATIVE: CASE EVENT DATE: 20150224
